FAERS Safety Report 6384939-6 (Version None)
Quarter: 2009Q4

REPORT INFORMATION
  Report Type: 
  Country: None (occurrence: None)
  Receive Date: 20091002
  Receipt Date: 20090814
  Transmission Date: 20100525
  Serious: No
  Sender: FDA-Public Use
  Company Number: A0803077A

PATIENT
  Sex: Male

DRUGS (2)
  1. REQUIP XL [Suspect]
     Indication: DRUG USE FOR UNKNOWN INDICATION
     Dosage: 12MG IN THE MORNING
     Route: 048
  2. SINEMET [Suspect]
     Indication: DRUG USE FOR UNKNOWN INDICATION
     Dosage: .25TAB IN THE MORNING
     Route: 048

REACTIONS (2)
  - DYSKINESIA [None]
  - MOVEMENT DISORDER [None]
